FAERS Safety Report 8611313-1 (Version None)
Quarter: 2012Q3

REPORT INFORMATION
  Report Type: 
  Country: None (occurrence: None)
  Receive Date: 20120822
  Receipt Date: 20120814
  Transmission Date: 20120928
  Serious: Yes (Other)
  Sender: FDA-Public Use
  Company Number: CH-PFIZER INC-2012195233

PATIENT
  Age: 74 Year
  Sex: Female

DRUGS (4)
  1. GENOTROPIN [Suspect]
     Dosage: 0.4 MG PER DAY
     Dates: start: 20011009
  2. ASPIRIN [Concomitant]
     Dosage: 100 MG PER DAY
     Dates: start: 20090101
  3. CITALOPRAM HYDROBROMIDE [Concomitant]
     Dosage: 20 MG, 1X/DAY
     Dates: start: 20110208
  4. GENOTROPIN [Suspect]
     Dosage: 0.3 MG PER DAY

REACTIONS (1)
  - PATHOLOGICAL FRACTURE [None]
